FAERS Safety Report 8614677 (Version 2)
Quarter: 2012Q4

REPORT INFORMATION
  Report Type: 
  Country: CN (occurrence: CN)
  Receive Date: 20120614
  Receipt Date: 20120829
  Transmission Date: 20130627
  Serious: Yes (Other)
  Sender: FDA-Public Use
  Company Number: PHHY2012CN050717

PATIENT
  Age: 30 Year
  Sex: Male

DRUGS (1)
  1. SEBIVO [Suspect]
     Indication: HEPATITIS B
     Dosage: 600 mg, UNK
     Route: 048
     Dates: start: 201204

REACTIONS (4)
  - Lipoma [Unknown]
  - Condition aggravated [Unknown]
  - Exposure via father [Unknown]
  - Pregnancy of partner [None]
